FAERS Safety Report 24583463 (Version 1)
Quarter: 2024Q4

REPORT INFORMATION
  Report Type: Spontaneous
  Country: GB (occurrence: GB)
  Receive Date: 20241106
  Receipt Date: 20241106
  Transmission Date: 20250115
  Serious: Yes (Hospitalization, Other)
  Sender: AUROBINDO
  Company Number: GB-MHRA-MED-202410241041054900-HQNLM

PATIENT
  Sex: Male

DRUGS (1)
  1. ATORVASTATIN [Suspect]
     Active Substance: ATORVASTATIN
     Indication: Product used for unknown indication
     Dosage: UNK
     Route: 065

REACTIONS (1)
  - Acute kidney injury [Recovered/Resolved]

NARRATIVE: CASE EVENT DATE: 20241015
